FAERS Safety Report 4691958-4 (Version None)
Quarter: 2005Q2

REPORT INFORMATION
  Report Type: 
  Country: None (occurrence: None)
  Receive Date: 20050616
  Receipt Date: 20050616
  Transmission Date: 20051028
  Serious: No
  Sender: FDA-Public Use
  Company Number: None

PATIENT
  Sex: Female
  Weight: 87.0906 kg

DRUGS (1)
  1. ISOVUE-300 [Suspect]
     Indication: SPLENOMEGALY
     Dosage: 150 CC'S X 1 I.V. BOLUS
     Route: 040

REACTIONS (1)
  - SENSATION OF PRESSURE [None]
